FAERS Safety Report 7966862-6 (Version None)
Quarter: 2011Q4

REPORT INFORMATION
  Report Type: 
  Country: None (occurrence: None)
  Receive Date: 20111209
  Receipt Date: 20111206
  Transmission Date: 20120403
  Serious: No
  Sender: FDA-Public Use
  Company Number: US-PFIZER INC-2011297973

PATIENT
  Sex: Female

DRUGS (4)
  1. RITALIN [Concomitant]
     Dosage: UNK
  2. PRISTIQ [Suspect]
     Dosage: 50 MG, 1X/DAY
     Route: 048
     Dates: start: 20111123
  3. PRISTIQ [Suspect]
     Dosage: UNK, 1X/DAY
     Route: 048
  4. LORTAB [Concomitant]
     Dosage: UNK

REACTIONS (1)
  - MEDICATION RESIDUE [None]
